FAERS Safety Report 8583352-0 (Version None)
Quarter: 2012Q3

REPORT INFORMATION
  Report Type: 
  Country: None (occurrence: None)
  Receive Date: 20120809
  Receipt Date: 20120808
  Transmission Date: 20120928
  Serious: Yes (Hospitalization, Other)
  Sender: FDA-Public Use
  Company Number: PHHY2012SE068414

PATIENT
  Sex: Male

DRUGS (8)
  1. EMCONCOR CHF [Concomitant]
     Dosage: 5 MG, UNK
  2. LANTUS [Concomitant]
  3. SIMVASTATIN [Concomitant]
     Dosage: 40 MG, UNK
  4. NITROLINGUAL [Concomitant]
     Route: 060
  5. TIMOLOL MALEATE [Concomitant]
  6. NOVORAPID [Concomitant]
  7. VALSARTAN  AND HYDROCHLOROTHIAZIDE [Suspect]
     Indication: HYPERTONIA
     Dosage: 1 DF, DAILY
     Dates: end: 20120612
  8. ASPIRIN [Concomitant]

REACTIONS (5)
  - NAUSEA [None]
  - DIZZINESS [None]
  - GLYCOSYLATED HAEMOGLOBIN INCREASED [None]
  - VOMITING [None]
  - BLOOD GLUCOSE INCREASED [None]
